FAERS Safety Report 14639312 (Version 1)
Quarter: 2018Q1

REPORT INFORMATION
  Report Type: Spontaneous
  Country: CO (occurrence: CO)
  Receive Date: 20180315
  Receipt Date: 20180315
  Transmission Date: 20180509
  Serious: Yes (Other)
  Sender: FDA-Public Use
  Company Number: CO-AMGEN-COLSP2018033119

PATIENT
  Sex: Female

DRUGS (1)
  1. XGEVA [Suspect]
     Active Substance: DENOSUMAB
     Indication: BREAST CANCER METASTATIC
     Dosage: UNK
     Route: 065
     Dates: start: 2017

REACTIONS (1)
  - Osteonecrosis of jaw [Unknown]

NARRATIVE: CASE EVENT DATE: 2017
